FAERS Safety Report 5069433-7 (Version None)
Quarter: 2006Q3

REPORT INFORMATION
  Report Type: 
  Country: None (occurrence: None)
  Receive Date: 20060802
  Receipt Date: 20060802
  Transmission Date: 20061208
  Serious: Yes (Hospitalization)
  Sender: FDA-Public Use
  Company Number: None

PATIENT
  Age: 64 Year
  Sex: Male
  Weight: 68 kg

DRUGS (1)
  1. SIMVASTATIN [Suspect]
     Indication: HYPERLIPIDAEMIA
     Dosage: PO Q DAY
     Route: 048
     Dates: start: 20030501

REACTIONS (3)
  - BLOOD CREATINE INCREASED [None]
  - DIZZINESS [None]
  - RHABDOMYOLYSIS [None]
